FAERS Safety Report 25488265 (Version 1)
Quarter: 2025Q2

REPORT INFORMATION
  Report Type: Spontaneous
  Country: US (occurrence: US)
  Receive Date: 20250627
  Receipt Date: 20250627
  Transmission Date: 20250717
  Serious: No
  Sender: PFIZER
  Company Number: US-PFIZER INC-202500065711

PATIENT
  Age: 24 Year
  Sex: Female

DRUGS (3)
  1. VELSIPITY [Suspect]
     Active Substance: ETRASIMOD ARGININE
  2. RITALIN [Concomitant]
     Active Substance: METHYLPHENIDATE HYDROCHLORIDE
     Indication: Attention deficit hyperactivity disorder
  3. MESALAMINE [Concomitant]
     Active Substance: MESALAMINE

REACTIONS (2)
  - Back pain [Unknown]
  - Myalgia [Unknown]
